FAERS Safety Report 25580664 (Version 1)
Quarter: 2025Q3

REPORT INFORMATION
  Report Type: Spontaneous
  Country: US (occurrence: US)
  Receive Date: 20250718
  Receipt Date: 20250718
  Transmission Date: 20251021
  Serious: No
  Sender: NOVO NORDISK
  Company Number: US-NOVOPROD-1428435

PATIENT
  Age: 77 Year
  Sex: Female

DRUGS (3)
  1. WEGOVY [Suspect]
     Active Substance: SEMAGLUTIDE
     Indication: Weight control
     Dosage: , QW
     Route: 058
     Dates: start: 20250402
  2. WEGOVY [Suspect]
     Active Substance: SEMAGLUTIDE
     Indication: Gait disturbance
  3. WEGOVY [Suspect]
     Active Substance: SEMAGLUTIDE
     Indication: Disease risk factor

REACTIONS (6)
  - Hunger [Not Recovered/Not Resolved]
  - Injection site discharge [Not Recovered/Not Resolved]
  - Injection site indentation [Recovered/Resolved]
  - Abdominal pain upper [Recovered/Resolved]
  - Nausea [Recovered/Resolved]
  - Drug ineffective [Not Recovered/Not Resolved]

NARRATIVE: CASE EVENT DATE: 20250404
